FAERS Safety Report 17421515 (Version 1)
Quarter: 2020Q1

REPORT INFORMATION
  Report Type: Spontaneous
  Country: US (occurrence: US)
  Receive Date: 20200214
  Receipt Date: 20200214
  Transmission Date: 20200409
  Serious: No
  Sender: FDA-Public Use
  Company Number: US-TEVA-2020-US-1184811

PATIENT
  Sex: Male

DRUGS (1)
  1. TESTOSTERONE CYPIONATE ACTAVIS [Suspect]
     Active Substance: TESTOSTERONE CYPIONATE
     Route: 065

REACTIONS (3)
  - Gastrointestinal disorder [Unknown]
  - Pyrexia [Unknown]
  - Adverse event [Recovered/Resolved]
